FAERS Safety Report 23741584 (Version 1)
Quarter: 2024Q2

REPORT INFORMATION
  Report Type: Spontaneous
  Country: TR (occurrence: TR)
  Receive Date: 20240415
  Receipt Date: 20240415
  Transmission Date: 20240717
  Serious: Yes (Other)
  Sender: FDA-Public Use
  Company Number: TR-EPICPHARMA-TR-2024EPCLIT00365

PATIENT
  Age: 61 Year
  Sex: Male

DRUGS (5)
  1. IRINOTECAN HYDROCHLORIDE [Suspect]
     Active Substance: IRINOTECAN HYDROCHLORIDE
     Indication: Rectal adenocarcinoma
     Route: 065
     Dates: start: 201701
  2. FLUOROURACIL [Suspect]
     Active Substance: FLUOROURACIL
     Indication: Rectal adenocarcinoma
     Route: 065
     Dates: start: 201701
  3. BEVACIZUMAB [Suspect]
     Active Substance: BEVACIZUMAB
     Indication: Rectal adenocarcinoma
     Route: 065
     Dates: start: 201701
  4. CAPECITABINE\OXALIPLATIN [Suspect]
     Active Substance: CAPECITABINE\OXALIPLATIN
     Indication: Rectal adenocarcinoma
     Dosage: 6 COURSES OF XELOX (OXALIPLATIN + CAPECITABINE)
     Route: 065
  5. LEUCOVORIN CALCIUM [Concomitant]
     Active Substance: LEUCOVORIN CALCIUM
     Indication: Rectal adenocarcinoma
     Route: 065
     Dates: start: 201701

REACTIONS (2)
  - Cardiotoxicity [Recovering/Resolving]
  - Coronary artery stenosis [Recovering/Resolving]
